FAERS Safety Report 7386163-7 (Version None)
Quarter: 2011Q1

REPORT INFORMATION
  Report Type: 
  Country: None (occurrence: None)
  Receive Date: 20110323
  Receipt Date: 20110316
  Transmission Date: 20110831
  Serious: Yes (Hospitalization)
  Sender: FDA-Public Use
  Company Number: 2011SP012403

PATIENT
  Age: 79 Year
  Sex: Male

DRUGS (8)
  1. CLARITIN [Suspect]
     Indication: PREMEDICATION
     Dosage: 1 DF, ONCE, PO
     Route: 048
     Dates: start: 20101015, end: 20101015
  2. NIMBEX [Suspect]
     Indication: INDUCTION OF ANAESTHESIA
     Dosage: 10 MG, ONCE, IV
     Route: 042
     Dates: start: 20101015, end: 20101015
  3. PREDNISONE ARROW (PREDNISONE /00044701/) [Suspect]
     Indication: PRODUCT USED FOR UNKNOWN INDICATION
     Dosage: 25 MG, ONCE, PO
     Route: 048
     Dates: start: 20101014, end: 20101014
  4. AERIUS (DESLORATADINE /01398501/) [Suspect]
     Indication: PRODUCT USED FOR UNKNOWN INDICATION
     Dosage: 1 DF, ONCE, PO
     Route: 048
     Dates: start: 20101014, end: 20101014
  5. SUFENTA (SUFENTANIL CITRATE) [Suspect]
     Indication: INDUCTION OF ANAESTHESIA
     Dosage: 32.5 MCG, ONCE, IV
     Route: 042
     Dates: start: 20101015, end: 20101015
  6. ATARAX [Concomitant]
  7. HYPNOMIDATE (ETOMIDATE) [Suspect]
     Indication: INDUCTION OF ANAESTHESIA
     Dosage: 40 MG, ONCE, IV
     Route: 042
     Dates: start: 20101015, end: 20101015
  8. VANCOMYCINE [Concomitant]

REACTIONS (7)
  - POST PROCEDURAL COMPLICATION [None]
  - NAUSEA [None]
  - URTICARIA [None]
  - HYPOTENSION [None]
  - HYPERTHERMIA [None]
  - CIRCULATORY COLLAPSE [None]
  - LIVEDO RETICULARIS [None]
